FAERS Safety Report 18356357 (Version 1)
Quarter: 2020Q4

REPORT INFORMATION
  Report Type: Spontaneous
  Country: JP (occurrence: JP)
  Receive Date: 20201007
  Receipt Date: 20201007
  Transmission Date: 20210114
  Serious: Yes (Other)
  Sender: FDA-Public Use
  Company Number: JP-UPSHER-SMITH LABORATORIES, LLC-2020USL00536

PATIENT
  Sex: Male

DRUGS (1)
  1. FLUVOXAMINE MALEATE. [Suspect]
     Active Substance: FLUVOXAMINE MALEATE
     Dosage: UNK
     Route: 048
     Dates: end: 20200923

REACTIONS (5)
  - Pruritus [Unknown]
  - Headache [Not Recovered/Not Resolved]
  - Swollen tongue [Unknown]
  - Throat irritation [Unknown]
  - Shock [Unknown]

NARRATIVE: CASE EVENT DATE: 20200923
